FAERS Safety Report 5323294-7 (Version None)
Quarter: 2007Q2

REPORT INFORMATION
  Report Type: 
  Country: None (occurrence: None)
  Receive Date: 20070220
  Receipt Date: 20061128
  Transmission Date: 20071010
  Serious: No
  Sender: FDA-Public Use
  Company Number: WAES 0611USA07309

PATIENT
  Age: 76 Year
  Sex: Female

DRUGS (5)
  1. JANUVIA [Suspect]
     Indication: DIABETES MELLITUS NON-INSULIN-DEPENDENT
     Dosage: 100 MG/DAILY/PO
     Route: 048
     Dates: start: 20061122, end: 20061124
  2. GLUCOPHAGE [Concomitant]
  3. HYDRODIURIL [Concomitant]
  4. FOLIC ACID [Concomitant]
  5. VITAMINS [Concomitant]

REACTIONS (4)
  - CONSTIPATION [None]
  - FLATULENCE [None]
  - PAIN IN EXTREMITY [None]
  - RECTAL HAEMORRHAGE [None]
